FAERS Safety Report 7606001-4 (Version None)
Quarter: 2011Q3

REPORT INFORMATION
  Report Type: 
  Country: None (occurrence: None)
  Receive Date: 20110713
  Receipt Date: 20110629
  Transmission Date: 20111222
  Serious: Yes (Hospitalization, Other)
  Sender: FDA-Public Use
  Company Number: PHHY2011DE58387

PATIENT
  Sex: Male
  Weight: 76 kg

DRUGS (13)
  1. MARCUMAR [Concomitant]
     Dosage: UNK UKN, UNK
     Route: 048
     Dates: start: 20100920
  2. VASODILAN [Concomitant]
     Dosage: UNK UKN, UNK
  3. AMLODIPINE [Concomitant]
     Dosage: 1 DF, QD
     Dates: start: 20100920
  4. DIOVAN [Suspect]
     Indication: HYPERTENSION
     Dosage: 80 MG PER DAY, UNK
     Route: 048
  5. SIMVASTATIN [Concomitant]
     Dosage: 1 DF, QD
     Route: 048
     Dates: start: 20091110
  6. BISOPROLOL FUMARATE [Concomitant]
     Dosage: 1 DF, QD
     Route: 048
     Dates: start: 20100825
  7. ANTIHYPERTENSIVE DRUGS [Concomitant]
     Dosage: UNK UKN, UNK
  8. DIURETICS [Concomitant]
     Dosage: UNK UKN, UNK
     Dates: start: 20100325
  9. ASPIRIN [Concomitant]
     Dosage: 1 DF, QD
     Dates: start: 20100920
  10. ALISKIREN [Suspect]
     Indication: HYPERTENSION
     Dosage: UNK UKN, UNK
     Route: 048
     Dates: start: 20090115, end: 20100608
  11. ANTICOAGULANTS [Concomitant]
     Dosage: UNK UKN, UNK
     Route: 048
  12. BETA BLOCKING AGENTS [Concomitant]
     Dosage: UNK UKN, UNK
  13. ACE INHIBITOR NOS [Concomitant]
     Dosage: UNK UKN, UNK
     Dates: start: 20100920

REACTIONS (5)
  - ANGINA PECTORIS [None]
  - DYSPNOEA [None]
  - HEART RATE DECREASED [None]
  - CONDITION AGGRAVATED [None]
  - ATRIAL FLUTTER [None]
